FAERS Safety Report 7057638-5 (Version None)
Quarter: 2010Q4

REPORT INFORMATION
  Report Type: 
  Country: None (occurrence: None)
  Receive Date: 20101022
  Receipt Date: 20101013
  Transmission Date: 20110411
  Serious: Yes (Death, Other)
  Sender: FDA-Public Use
  Company Number: JP-ROCHE-734559

PATIENT
  Age: 69 Year
  Sex: Female
  Weight: 52 kg

DRUGS (7)
  1. AVASTIN [Suspect]
     Indication: COLON CANCER METASTATIC
     Route: 041
     Dates: start: 20080101, end: 20080101
  2. IRINOTECAN HYDROCHLORIDE [Concomitant]
     Route: 041
     Dates: start: 20080101, end: 20080101
  3. FLUOROURACIL [Concomitant]
     Route: 041
     Dates: start: 20080101, end: 20080101
  4. FLUOROURACIL [Concomitant]
     Dosage: DOSE INTRAVENOUS BOLUS
     Route: 041
     Dates: start: 20080101, end: 20080101
  5. LEUCOVORIN CALCIUM [Concomitant]
     Route: 041
     Dates: start: 20080101, end: 20080101
  6. OPIUM [Concomitant]
     Dosage: NOTE: DOSAGE IS UNCERTAIN.
     Route: 065
     Dates: start: 20080101
  7. ANTIHYPERTENSIVE AGENTS [Concomitant]
     Dosage: NOTE: DOSAGE IS UNCERTAIN. DRUG NAME ANTIHYPERTENSIVES
     Route: 065

REACTIONS (3)
  - BLOOD PRESSURE INCREASED [None]
  - CEREBRAL HAEMORRHAGE [None]
  - VARICOSE VEIN [None]
